FAERS Safety Report 12645544 (Version 5)
Quarter: 2017Q1

REPORT INFORMATION
  Report Type: Report from Study
  Country: AU (occurrence: AU)
  Receive Date: 20160811
  Receipt Date: 20170313
  Transmission Date: 20170428
  Serious: Yes (Hospitalization, Other)
  Sender: FDA-Public Use
  Company Number: AU-MYLANLABS-2016M1031302

PATIENT

DRUGS (12)
  1. CLOZARIL [Suspect]
     Active Substance: CLOZAPINE
     Dosage: UNK
     Dates: end: 20160628
  2. ALLOPURINOL. [Suspect]
     Active Substance: ALLOPURINOL
     Indication: PRODUCT USED FOR UNKNOWN INDICATION
     Dosage: UNK
  3. CLOZARIL [Suspect]
     Active Substance: CLOZAPINE
     Dosage: UNK
     Route: 048
     Dates: start: 20160720, end: 20160730
  4. CLOZARIL [Suspect]
     Active Substance: CLOZAPINE
     Indication: SCHIZOPHRENIA
     Dosage: 600 MG, QD
     Route: 048
     Dates: start: 20091003, end: 20160713
  5. VALPROIC ACID. [Suspect]
     Active Substance: VALPROIC ACID
     Indication: PRODUCT USED FOR UNKNOWN INDICATION
     Dosage: 500 MG, AM
  6. VALPROIC ACID. [Suspect]
     Active Substance: VALPROIC ACID
     Dosage: UNK
  7. OLANZAPINE. [Suspect]
     Active Substance: OLANZAPINE
     Dosage: UNK
  8. PIPERACILLIN/TAZOBACTAM [Suspect]
     Active Substance: PIPERACILLIN SODIUM\TAZOBACTAM SODIUM
     Indication: SEPSIS
     Dosage: 4.5 G, UNK
     Route: 042
     Dates: start: 20160714, end: 20160802
  9. OLANZAPINE. [Suspect]
     Active Substance: OLANZAPINE
     Indication: PRODUCT USED FOR UNKNOWN INDICATION
     Dosage: 10 MG, HS
     Dates: start: 20160714
  10. PIPERACILLIN/TAZOBACTAM [Suspect]
     Active Substance: PIPERACILLIN SODIUM\TAZOBACTAM SODIUM
     Dosage: UNK
     Route: 042
  11. VALPROIC ACID. [Suspect]
     Active Substance: VALPROIC ACID
     Dosage: 1000 MG, PM
     Dates: end: 20160816
  12. CLOZARIL [Suspect]
     Active Substance: CLOZAPINE
     Dosage: 300 MG, UNK
     Dates: end: 20160714

REACTIONS (17)
  - Thrombocytopenia [Unknown]
  - Thinking abnormal [None]
  - Liver disorder [Unknown]
  - Cholecystitis [Unknown]
  - Empyema [Unknown]
  - Persecutory delusion [Unknown]
  - Sepsis [Recovered/Resolved]
  - Aggression [Unknown]
  - Lower respiratory tract infection [Unknown]
  - Seizure [Unknown]
  - Hallucination, auditory [Unknown]
  - Dystonia [Unknown]
  - Serum ferritin increased [Unknown]
  - Agranulocytosis [Unknown]
  - Mental impairment [Unknown]
  - Liver abscess [Unknown]
  - Extrapyramidal disorder [Unknown]
